FAERS Safety Report 9787539 (Version 3)
Quarter: 2014Q2

REPORT INFORMATION
  Report Type: Spontaneous
  Country: US (occurrence: None)
  Receive Date: 20131224
  Receipt Date: 20140527
  Transmission Date: 20141212
  Serious: Yes (Hospitalization)
  Sender: FDA-Public Use
  Company Number: 2013US002784

PATIENT
  Age: 74 Year
  Sex: Male
  Weight: 86 kg

DRUGS (14)
  1. ICLUSIG [Suspect]
     Indication: CHRONIC MYELOID LEUKAEMIA
     Route: 048
     Dates: start: 20130831, end: 201309
  2. ICLUSIG [Suspect]
     Indication: CHROMOSOME ANALYSIS ABNORMAL
     Route: 048
     Dates: start: 20130831, end: 201309
  3. FOLIC ACID (FOLIC ACID) [Concomitant]
  4. DIAZEPAM (DIAZEPAM) [Concomitant]
  5. FISH OIL (FISH OIL) [Concomitant]
  6. LASIX (FUROSEMIDE) [Concomitant]
  7. NORVASC (AMLODIPINE BESILATE) [Concomitant]
  8. PLAVIX (CLOPIDOGREL BISULFATE) [Concomitant]
  9. SERTRALINE (SERTRALINE) [Concomitant]
  10. NEXIUM I.V. [Concomitant]
  11. GLEEVEC (IMATINIB MESILATE) [Concomitant]
  12. CALCIUM-CARB PLUS D2 (CALCIUM CARBONATE) [Concomitant]
  13. POTASSIUM GLUCONATE (POTASSIUM GLUCONATE) [Concomitant]
  14. SPRYCEL (DASATINIB MONOHYDRATE) [Concomitant]

REACTIONS (21)
  - Flushing [None]
  - Neck pain [None]
  - Pain in jaw [None]
  - Memory impairment [None]
  - Skin exfoliation [None]
  - Hypertension [None]
  - Pain in extremity [None]
  - Musculoskeletal pain [None]
  - Rash erythematous [None]
  - Headache [None]
  - Arthropod bite [None]
  - Pain [None]
  - Drug effect decreased [None]
  - Erythema [None]
  - Abdominal pain [None]
  - Weight decreased [None]
  - Rash generalised [None]
  - Abdominal pain upper [None]
  - Oedema peripheral [None]
  - Chest pain [None]
  - Skin exfoliation [None]
